FAERS Safety Report 14553293 (Version 1)
Quarter: 2018Q1

REPORT INFORMATION
  Report Type: Spontaneous
  Country: IT (occurrence: IT)
  Receive Date: 20180220
  Receipt Date: 20180220
  Transmission Date: 20180509
  Serious: Yes (Other)
  Sender: FDA-Public Use
  Company Number: IT-WEST-WARD PHARMACEUTICALS CORP.-IT-H14001-18-01207

PATIENT
  Sex: Female

DRUGS (6)
  1. RIVOTRIL [Interacting]
     Active Substance: CLONAZEPAM
     Indication: EPILEPSY
     Route: 065
  2. DEPAKIN [Interacting]
     Active Substance: VALPROATE SODIUM
     Indication: EPILEPSY
     Route: 065
  3. NORLEVO [Interacting]
     Active Substance: LEVONORGESTREL
     Indication: CONTRACEPTION
     Route: 065
  4. SEROQUEL [Interacting]
     Active Substance: QUETIAPINE FUMARATE
     Indication: EPILEPSY
     Route: 065
  5. LEVETIRACETAM. [Suspect]
     Active Substance: LEVETIRACETAM
     Indication: EPILEPSY
     Route: 065
  6. FOLINA [Interacting]
     Active Substance: FOLIC ACID
     Indication: EPILEPSY
     Route: 065

REACTIONS (8)
  - Mood swings [Unknown]
  - Mental impairment [Unknown]
  - Anger [Unknown]
  - Pollakiuria [Unknown]
  - Agitation [Unknown]
  - Breast swelling [Unknown]
  - Drug ineffective [Unknown]
  - Drug interaction [Unknown]
